FAERS Safety Report 7415037-8 (Version None)
Quarter: 2011Q2

REPORT INFORMATION
  Report Type: 
  Country: None (occurrence: None)
  Receive Date: 20110414
  Receipt Date: 20110209
  Transmission Date: 20111010
  Serious: Yes (Other)
  Sender: FDA-Public Use
  Company Number: FR-ROCHE-759390

PATIENT
  Sex: Female

DRUGS (4)
  1. TAMIFLU [Suspect]
     Route: 048
     Dates: start: 20110104, end: 20110109
  2. FUNGIZONE [Suspect]
     Route: 048
     Dates: start: 20110104, end: 20110109
  3. TAVANIC [Suspect]
     Route: 048
     Dates: start: 20110106, end: 20110109
  4. PNEUMOREL [Suspect]
     Route: 048
     Dates: start: 20110104, end: 20110109

REACTIONS (2)
  - RASH ERYTHEMATOUS [None]
  - PRURITUS [None]
